FAERS Safety Report 4746198-7 (Version None)
Quarter: 2005Q3

REPORT INFORMATION
  Report Type: 
  Country: None (occurrence: None)
  Receive Date: 20050816
  Receipt Date: 20050708
  Transmission Date: 20060218
  Serious: Yes (Other)
  Sender: FDA-Public Use
  Company Number: US-MERCK-0507USA01211

PATIENT
  Age: 66 Year
  Sex: Male
  Weight: 116 kg

DRUGS (3)
  1. VIOXX [Suspect]
     Indication: ARTHRITIS
     Route: 048
     Dates: start: 20020530
  2. ASPIRIN [Concomitant]
     Route: 065
  3. EXCEDRIN (ACETAMINOPHEN (+) CAFFEINE) [Concomitant]
     Route: 065

REACTIONS (4)
  - CAROTID ARTERY OCCLUSION [None]
  - CEREBROVASCULAR ACCIDENT [None]
  - PROSTATE CANCER [None]
  - WOUND DEHISCENCE [None]
